FAERS Safety Report 14680101 (Version 1)
Quarter: 2018Q1

REPORT INFORMATION
  Report Type: Spontaneous
  Country: US (occurrence: US)
  Receive Date: 20180326
  Receipt Date: 20180326
  Transmission Date: 20180509
  Serious: Yes (Other)
  Sender: FDA-Public Use
  Company Number: US-BAYER-2018-055475

PATIENT
  Sex: Female
  Weight: 86.17 kg

DRUGS (1)
  1. BAYER LOW DOSE [Suspect]
     Active Substance: ASPIRIN
     Dosage: 1 DF, QD
     Route: 048
     Dates: start: 2005, end: 2007

REACTIONS (6)
  - Haemorrhage [Unknown]
  - Internal haemorrhage [Unknown]
  - Haematemesis [Recovered/Resolved]
  - Product use issue [Unknown]
  - Epistaxis [Recovered/Resolved]
  - Intestinal haemorrhage [Recovered/Resolved]

NARRATIVE: CASE EVENT DATE: 2005
